APPROVED DRUG PRODUCT: OMNIPEN-N
Active Ingredient: AMPICILLIN SODIUM
Strength: EQ 500MG BASE/VIAL
Dosage Form/Route: INJECTABLE;INJECTION
Application: A062718 | Product #003
Applicant: WYETH AYERST LABORATORIES
Approved: Dec 16, 1986 | RLD: No | RS: No | Type: DISCN